FAERS Safety Report 8317087-6 (Version None)
Quarter: 2012Q2

REPORT INFORMATION
  Report Type: 
  Country: None (occurrence: None)
  Receive Date: 20120427
  Receipt Date: 20120422
  Transmission Date: 20120825
  Serious: Yes (Other)
  Sender: FDA-Public Use
  Company Number: JP-PFIZER INC-2012062370

PATIENT
  Age: 56 Year
  Sex: Female
  Weight: 70 kg

DRUGS (13)
  1. CELEBREX [Suspect]
     Indication: OSTEOARTHRITIS
     Dosage: 1 DF, 2X/DAY
     Route: 048
     Dates: start: 20111221, end: 20120103
  2. ALLEGRA [Concomitant]
     Dosage: UNK
  3. OPALMON [Suspect]
     Dosage: 1 DF, 3X/DAY
     Route: 048
     Dates: start: 20111221, end: 20120103
  4. DIOVAN [Concomitant]
     Indication: HYPERTENSION
     Dosage: UNK
  5. CEFAZOLIN SODIUM [Concomitant]
     Dosage: UNK
     Route: 048
     Dates: start: 20111220
  6. SENNOSIDE A+B [Concomitant]
     Indication: CONSTIPATION
     Dosage: UNK
     Route: 048
     Dates: start: 20111220
  7. RABEPRAZOLE SODIUM [Concomitant]
     Indication: GASTRITIS
     Dosage: UNK
     Route: 048
     Dates: start: 20111220
  8. PERAPRIN [Concomitant]
     Dosage: UNK
  9. AMLODIPINE BESILATE [Concomitant]
     Dosage: UNK
  10. MINOCYCLINE HYDROCHLORIDE [Concomitant]
     Dosage: UNK
     Route: 048
     Dates: start: 20111220
  11. MECOBALAMIN [Concomitant]
     Dosage: UNK
     Route: 048
     Dates: start: 20111220
  12. URSO 250 [Concomitant]
     Indication: HEPATITIS C
     Dosage: UNK
  13. NEUROTROPIN [Concomitant]
     Dosage: UNK

REACTIONS (1)
  - DRUG ERUPTION [None]
